FAERS Safety Report 4317316-X (Version None)
Quarter: 2004Q1

REPORT INFORMATION
  Report Type: 
  Country: None (occurrence: None)
  Receive Date: 20040312
  Receipt Date: 20040226
  Transmission Date: 20041129
  Serious: Yes (Hospitalization, Other)
  Sender: FDA-Public Use
  Company Number: 001#1#2004-00039

PATIENT
  Age: 85 Year
  Sex: Female

DRUGS (5)
  1. PROSTAVASIN-OHNE-DOSIS (ALPROSTADIL (PAOD)) [Suspect]
     Indication: PERIPHERAL VASCULAR DISORDER
     Dosage: 1.2 X 1 AMPULE / DAY IN 250 ML NACL INTRAVENOUS DRIP
     Route: 041
  2. ... [Suspect]
  3. ... [Concomitant]
  4. ... [Concomitant]
  5. ...... [Concomitant]

REACTIONS (4)
  - EXTRASYSTOLES [None]
  - HYPERTENSION [None]
  - RESTLESSNESS [None]
  - TACHYCARDIA [None]
